FAERS Safety Report 10883851 (Version 1)
Quarter: 2015Q1

REPORT INFORMATION
  Report Type: Report from Study
  Country: FR (occurrence: FR)
  Receive Date: 20150304
  Receipt Date: 20150304
  Transmission Date: 20150721
  Serious: Yes (Death, Hospitalization, Other)
  Sender: FDA-Public Use
  Company Number: FR-ROCHE-1162518

PATIENT
  Age: 74 Year
  Sex: Female

DRUGS (5)
  1. CORTANCYL [Concomitant]
     Active Substance: PREDNISONE
     Dosage: DAY 15
     Route: 065
  2. CORTANCYL [Concomitant]
     Active Substance: PREDNISONE
     Dosage: 15MG ON DAY 1 AND 12?MG ON DAY 15
     Route: 065
  3. RITUXIMAB [Suspect]
     Active Substance: RITUXIMAB
     Indication: RHEUMATOID ARTHRITIS
     Route: 042
     Dates: start: 20080225, end: 20080310
  4. METHYLPREDNISOLONE. [Concomitant]
     Active Substance: METHYLPREDNISOLONE
     Dosage: ON DAY 1 AND DAY 15
     Route: 065
  5. PARACETAMOL [Concomitant]
     Active Substance: ACETAMINOPHEN

REACTIONS (19)
  - Perforated ulcer [Recovered/Resolved]
  - Intestinal obstruction [Recovered/Resolved]
  - Skin ulcer [Not Recovered/Not Resolved]
  - Infusion related reaction [Recovered/Resolved]
  - Bronchopneumonia [Recovered/Resolved]
  - Peripheral artery thrombosis [Recovered/Resolved]
  - Cardiac failure [Recovered/Resolved]
  - Pneumonia aspiration [Recovered/Resolved]
  - Dermatitis [Recovered/Resolved]
  - Overdose [Recovered/Resolved]
  - Dyspnoea exertional [Not Recovered/Not Resolved]
  - Peripheral venous disease [Not Recovered/Not Resolved]
  - Lung disorder [Fatal]
  - Diabetes mellitus [Unknown]
  - Hypertension [Recovered/Resolved]
  - Panniculitis [Recovered/Resolved]
  - Osteitis [Recovered/Resolved]
  - Sepsis [Recovered/Resolved]
  - Bladder dilatation [Unknown]

NARRATIVE: CASE EVENT DATE: 20080225
